FAERS Safety Report 3732627 (Version 2)
Quarter: 2012Q4

REPORT INFORMATION
  Report Type: 
  Country: CA (occurrence: CA)
  Receive Date: 20011116
  Receipt Date: 20121122
  Transmission Date: 20130627
  Serious: Yes (Hospitalization, Other)
  Sender: FDA-Public Use
  Company Number: PHBS2001CA08283

PATIENT
  Age: 74 Year
  Sex: Male

DRUGS (4)
  1. EXELON [Suspect]
     Indication: DEMENTIA ALZHEIMER^S TYPE
     Dosage: 1.5 mg, BID
     Route: 048
     Dates: start: 20010425, end: 20010725
  2. EXELON [Suspect]
     Dosage: 3 mg, BID
     Route: 048
     Dates: start: 20010509
  3. DITROPAN [Concomitant]
     Dosage: 5 mg, BID
  4. ZESTRIL [Concomitant]
     Dosage: 10 mg, QD

REACTIONS (7)
  - Neck pain [Recovered/Resolved]
  - Musculoskeletal pain [Recovered/Resolved]
  - Pain [Recovered/Resolved]
  - Hypokinesia [Recovered/Resolved]
  - Headache [Not Recovered/Not Resolved]
  - Fall [Recovered/Resolved]
  - Confusional state [Recovered/Resolved]
